FAERS Safety Report 12642924 (Version 3)
Quarter: 2016Q4

REPORT INFORMATION
  Report Type: Report from Study
  Country: JP (occurrence: JP)
  Receive Date: 20160811
  Receipt Date: 20161027
  Transmission Date: 20170207
  Serious: Yes (Death, Hospitalization, Other)
  Sender: FDA-Public Use
  Company Number: JP-UCBSA-2016030232

PATIENT
  Age: 82 Year
  Sex: Male

DRUGS (14)
  1. LEVETIRACETAM. [Suspect]
     Active Substance: LEVETIRACETAM
     Indication: SIMPLE PARTIAL SEIZURES
     Dosage: 500 MG, 2X/DAY (BID)
     Route: 048
     Dates: start: 20160128, end: 20160305
  2. ALEVIATIN [Concomitant]
     Active Substance: PHENYTOIN SODIUM
     Indication: SIMPLE PARTIAL SEIZURES
     Dosage: 250 MG, DAILY
     Route: 042
     Dates: start: 20160126, end: 20160128
  3. DESLANOSIDE [Concomitant]
     Active Substance: DESLANOSIDE
     Indication: CARDIAC FAILURE CHRONIC
     Dosage: 0.4 MG DAILY
     Dates: start: 20160303, end: 20160309
  4. ALEVIATIN [Concomitant]
     Active Substance: PHENYTOIN SODIUM
     Dosage: UNK
  5. FAMOTIDINE. [Concomitant]
     Active Substance: FAMOTIDINE
     Indication: PRODUCT USED FOR UNKNOWN INDICATION
     Dosage: 40 MG, ONCE DAILY (QD)
     Route: 048
     Dates: start: 20160128, end: 20160305
  6. CARBOCISTEINE [Concomitant]
     Active Substance: CARBOCYSTEINE
     Indication: PNEUMONIA
     Dosage: 15 ML, ONCE DAILY (QD)
     Route: 048
     Dates: start: 20160128, end: 20160305
  7. NEOPHYLLINE [Suspect]
     Active Substance: AMINOPHYLLINE
     Indication: CARDIAC FAILURE
     Dosage: 250 MG DAILY
     Route: 042
     Dates: start: 20160227, end: 20160303
  8. MINOCYCLINE HYDROCHLORIDE. [Concomitant]
     Active Substance: MINOCYCLINE HYDROCHLORIDE
     Indication: PNEUMONIA
     Dosage: 200 MG DAILY
     Route: 042
     Dates: start: 20160303, end: 20160304
  9. GLUTATHIONE [Concomitant]
     Active Substance: GLUTATHIONE
     Indication: HEPATIC FUNCTION ABNORMAL
     Dosage: 200 MG DAILY
     Route: 042
     Dates: start: 20160303, end: 20160309
  10. CILASTATIN SODIUM [Concomitant]
     Active Substance: CILASTATIN SODIUM
     Indication: PNEUMONIA
     Dosage: 1 G DAILY
     Route: 042
     Dates: start: 20160305, end: 20160309
  11. FUROSEMIDE. [Concomitant]
     Active Substance: FUROSEMIDE
     Indication: CARDIAC FAILURE CHRONIC
     Dosage: 40 MG DAILY
     Dates: start: 20160303, end: 20160309
  12. L-CYSTEINE [Concomitant]
     Active Substance: CYSTEINE
     Indication: HEPATIC FUNCTION ABNORMAL
     Dosage: 20 ML DAILY
     Route: 042
     Dates: start: 20160303, end: 20160309
  13. SALINE [Concomitant]
     Active Substance: SODIUM CHLORIDE
     Indication: SEIZURE
     Dosage: 100 ML
     Dates: start: 20160305
  14. IMIPENEM AND CILASTATIN [Concomitant]
     Active Substance: CILASTATIN SODIUM\IMIPENEM
     Indication: PNEUMONIA

REACTIONS (9)
  - Drug withdrawal syndrome [Recovered/Resolved]
  - Pneumonia [Fatal]
  - Neutrophil count increased [Unknown]
  - Lymphocyte count decreased [Unknown]
  - Blood albumin decreased [Unknown]
  - Blood urea increased [Unknown]
  - Cardiac failure chronic [Fatal]
  - Platelet count decreased [Unknown]
  - Hepatic function abnormal [Unknown]

NARRATIVE: CASE EVENT DATE: 20160215
